FAERS Safety Report 8106375-4 (Version None)
Quarter: 2012Q1

REPORT INFORMATION
  Report Type: 
  Country: None (occurrence: None)
  Receive Date: 20120130
  Receipt Date: 20120116
  Transmission Date: 20120608
  Serious: Yes (Death)
  Sender: FDA-Public Use
  Company Number: 2012POI057500004

PATIENT
  Age: 7 Year
  Sex: Male
  Weight: 48 kg

DRUGS (1)
  1. ROXICODONE [Suspect]
     Dosage: (30 MG, 1 ONCE), PER ORAL
     Route: 048
     Dates: start: 20100101, end: 20100101

REACTIONS (23)
  - DIZZINESS [None]
  - NO THERAPEUTIC RESPONSE [None]
  - BLOOD GLUCOSE INCREASED [None]
  - MULTI-ORGAN DISORDER [None]
  - DEPRESSED LEVEL OF CONSCIOUSNESS [None]
  - NERVOUS SYSTEM DISORDER [None]
  - TOXICITY TO VARIOUS AGENTS [None]
  - BODY TEMPERATURE DECREASED [None]
  - ALANINE AMINOTRANSFERASE INCREASED [None]
  - BLOOD ALKALINE PHOSPHATASE INCREASED [None]
  - PULMONARY OEDEMA [None]
  - ACCIDENTAL DEATH [None]
  - INCORRECT DOSE ADMINISTERED [None]
  - PUPIL FIXED [None]
  - WHITE BLOOD CELL COUNT INCREASED [None]
  - HAEMOGLOBIN INCREASED [None]
  - ACTIVATED PARTIAL THROMBOPLASTIN TIME PROLONGED [None]
  - GENERAL PHYSICAL HEALTH DETERIORATION [None]
  - RESPIRATORY ARREST [None]
  - INTERNATIONAL NORMALISED RATIO INCREASED [None]
  - ASPARTATE AMINOTRANSFERASE INCREASED [None]
  - PNEUMONIA ASPIRATION [None]
  - PULSE ABSENT [None]
